FAERS Safety Report 24355657 (Version 4)
Quarter: 2024Q4

REPORT INFORMATION
  Report Type: Report from Study
  Country: NL (occurrence: NL)
  Receive Date: 20240924
  Receipt Date: 20241126
  Transmission Date: 20250114
  Serious: Yes (Life-Threatening, Hospitalization, Disabling)
  Sender: SANOFI AVENTIS
  Company Number: NL-REGENERON PHARMACEUTICALS, INC.-2024-122958

PATIENT
  Age: 56 Year
  Sex: Female
  Weight: 60.8 kg

DRUGS (28)
  1. UBAMATAMAB [Suspect]
     Active Substance: UBAMATAMAB
     Indication: Ovarian cancer
     Dosage: 1 MG, 1X, (C1D1, SARILUMAB COHORT 3E)
     Route: 042
     Dates: start: 20240903, end: 20240903
  2. UBAMATAMAB [Suspect]
     Active Substance: UBAMATAMAB
     Dosage: 20 MG, QD
     Route: 042
     Dates: start: 20240910, end: 20240910
  3. SARILUMAB [Suspect]
     Active Substance: SARILUMAB
     Indication: Ovarian cancer
     Dosage: 350 MG, SINGLE (SARILUMAB COHORT 3E)
     Route: 042
     Dates: start: 20240903, end: 20240903
  4. MAGNESIUM HYDROXIDE [Concomitant]
     Active Substance: MAGNESIUM HYDROXIDE
     Indication: Constipation
     Dosage: 724 MG, QD
     Route: 048
     Dates: end: 20240921
  5. POLYETHYLENE GLYCOLS [Concomitant]
     Active Substance: POLYETHYLENE GLYCOLS
     Indication: Constipation
     Dosage: 1 DF (SACHET), PRN
     Route: 048
  6. OXYCODONE [Concomitant]
     Active Substance: OXYCODONE
     Indication: Abdominal pain upper
     Dosage: 5 MG, PRN
     Route: 048
  7. ACETAMINOPHEN [Concomitant]
     Active Substance: ACETAMINOPHEN
     Indication: Abdominal pain upper
     Dosage: 1000 MG, PRN
     Route: 048
  8. METOCLOPRAMIDE [Concomitant]
     Active Substance: METOCLOPRAMIDE
     Indication: Nausea
     Dosage: 10 MG, PRN
     Route: 048
     Dates: end: 20240906
  9. NATRIUM PHOSPHATE [Concomitant]
     Indication: Constipation
     Dosage: 10 MG, PRN
     Route: 054
  10. DOMPERIDONE [Concomitant]
     Active Substance: DOMPERIDONE
     Indication: Nausea
     Dosage: 10 MG, PRN
     Route: 048
     Dates: start: 20240906
  11. DOMPERIDONE [Concomitant]
     Active Substance: DOMPERIDONE
     Indication: Dyspepsia
  12. PANTOPRAZOLE [Concomitant]
     Active Substance: PANTOPRAZOLE
     Indication: Gastric ulcer
     Dosage: 40 MG, QD
     Route: 048
     Dates: start: 20240906, end: 20240918
  13. PANTOPRAZOLE [Concomitant]
     Active Substance: PANTOPRAZOLE
     Dosage: 40 MG, BID
     Route: 048
     Dates: start: 20240918, end: 20240922
  14. APIXABAN [Concomitant]
     Active Substance: APIXABAN
     Indication: Pulmonary embolism
     Dosage: 10 MG, BID
     Route: 048
     Dates: start: 20240820, end: 20240827
  15. APIXABAN [Concomitant]
     Active Substance: APIXABAN
     Dosage: 5 MG, BID
     Route: 048
     Dates: start: 20240427, end: 20240911
  16. APIXABAN [Concomitant]
     Active Substance: APIXABAN
     Dosage: 5 MG, BID
     Route: 048
     Dates: start: 20240917, end: 20240917
  17. PIPERACILLIN SODIUM\TAZOBACTAM SODIUM [Concomitant]
     Active Substance: PIPERACILLIN SODIUM\TAZOBACTAM SODIUM
     Indication: Prophylaxis
     Dosage: 18000 MG, QD
     Route: 042
     Dates: start: 20240912, end: 20240914
  18. PANTOPRAZOLE SODIUM [Concomitant]
     Active Substance: PANTOPRAZOLE SODIUM
     Indication: Gastrointestinal disorder
     Dosage: 40 MG, BID
     Route: 048
     Dates: start: 20240918, end: 20240923
  19. PANTOPRAZOLE SODIUM [Concomitant]
     Active Substance: PANTOPRAZOLE SODIUM
     Dosage: 40 MG, QD
     Route: 048
     Dates: start: 20240906, end: 20240918
  20. MOVICOLON [Concomitant]
     Active Substance: POLYETHYLENE GLYCOL 3350\POTASSIUM CHLORIDE\SODIUM BICARBONATE\SODIUM CHLORIDE
     Indication: Constipation
     Dosage: 1 SACHET, AS NECESSARY
     Route: 048
     Dates: start: 20240925
  21. BISACODYL [Concomitant]
     Active Substance: BISACODYL
     Indication: Constipation
     Dosage: 5 MG, QD
     Route: 048
     Dates: start: 20240929, end: 20240930
  22. DALTEPARIN [Concomitant]
     Active Substance: DALTEPARIN
     Indication: Embolism arterial
     Dosage: 5000 IU, BID
     Route: 058
     Dates: start: 20240923, end: 20240925
  23. DALTEPARIN [Concomitant]
     Active Substance: DALTEPARIN
     Indication: Pulmonary embolism
     Dosage: 7500 IU, BID
     Route: 058
     Dates: start: 20240918, end: 20240923
  24. SODIUM PHOSPHATE [Concomitant]
     Active Substance: SODIUM PHOSPHATE
     Indication: Supplementation therapy
     Dosage: 2 MMOL/HOUR, CONTINUOUS
     Route: 042
     Dates: start: 20240925, end: 20240928
  25. THIAMINE [Concomitant]
     Active Substance: THIAMINE
     Indication: Supplementation therapy
     Dosage: 250 MG, QD
     Route: 042
     Dates: start: 20240924, end: 20240930
  26. POTASSIUM CHLORIDE [Concomitant]
     Active Substance: POTASSIUM CHLORIDE
     Indication: Supplementation therapy
     Dosage: 30 MMOL, BID
     Route: 048
     Dates: start: 20240925, end: 20240930
  27. PANTOZAL [Concomitant]
     Indication: Gastrointestinal disorder
     Dosage: 40 MG, BID
     Route: 048
     Dates: start: 20240918, end: 20240923
  28. PANTOZAL [Concomitant]
     Dosage: 80 MG, BID
     Route: 042
     Dates: start: 20240923, end: 20240930

REACTIONS (5)
  - Disseminated intravascular coagulation [Recovered/Resolved with Sequelae]
  - Rectal haemorrhage [Recovered/Resolved]
  - Anaemia [Not Recovered/Not Resolved]
  - Embolism arterial [Recovered/Resolved]
  - Cytokine release syndrome [Recovered/Resolved with Sequelae]

NARRATIVE: CASE EVENT DATE: 20240911
